FAERS Safety Report 22231588 (Version 1)
Quarter: 2023Q2

REPORT INFORMATION
  Report Type: Spontaneous
  Country: US (occurrence: US)
  Receive Date: 20230420
  Receipt Date: 20230420
  Transmission Date: 20230722
  Serious: No
  Sender: FDA-Public Use
  Company Number: US-drreddys-SPO/USA/23/0162583

PATIENT
  Sex: Female

DRUGS (1)
  1. HABITROL LOZENGE CHERRY [Suspect]
     Active Substance: NICOTINE
     Indication: Tobacco user

REACTIONS (1)
  - Oral discomfort [Recovered/Resolved]
